FAERS Safety Report 4386611-0 (Version None)
Quarter: 2004Q2

REPORT INFORMATION
  Report Type: 
  Country: None (occurrence: None)
  Receive Date: 20040629
  Receipt Date: 20040616
  Transmission Date: 20050107
  Serious: Yes (Hospitalization)
  Sender: FDA-Public Use
  Company Number: FR-GLAXOSMITHKLINE-B0335785A

PATIENT
  Age: 34 Year
  Sex: Male
  Weight: 54 kg

DRUGS (5)
  1. COMBIVIR [Suspect]
     Indication: HIV INFECTION
     Dosage: 2TAB PER DAY
     Route: 048
     Dates: start: 20040512, end: 20040518
  2. CRIXIVAN [Suspect]
     Indication: HIV INFECTION
     Dosage: 800MG PER DAY
     Route: 048
     Dates: start: 20040513, end: 20040517
  3. NORVIR [Suspect]
     Indication: HIV INFECTION
     Dosage: 200MG PER DAY
     Route: 048
     Dates: start: 20040513, end: 20040517
  4. SUSTIVA [Suspect]
     Indication: HIV INFECTION
     Dosage: 600MG PER DAY
     Route: 048
     Dates: start: 20040512, end: 20040517
  5. UNKNOWN DRUG [Concomitant]

REACTIONS (3)
  - CYTOLYTIC HEPATITIS [None]
  - HEPATITIS [None]
  - TRANSAMINASES INCREASED [None]
